FAERS Safety Report 9245592 (Version 1)
Quarter: 2013Q1

REPORT INFORMATION
  Report Type: Spontaneous
  Country: US (occurrence: None)
  Receive Date: 20121130
  Receipt Date: 20121130
  Transmission Date: 20140127
  Serious: Yes (Other)
  Sender: FDA-Public Use
  Company Number: 346291

PATIENT
  Age: 86 Year
  Sex: Female
  Weight: 70.3 kg

DRUGS (1)
  1. NOVOLOG [Suspect]
     Indication: TYPE 2 DIABETES MELLITUS
     Dosage: 10 U, QD, SUBCUTANEOUS
     Dates: start: 201201

REACTIONS (1)
  - Blood glucose decreased [None]
